FAERS Safety Report 20497606 (Version 1)
Quarter: 2022Q1

REPORT INFORMATION
  Report Type: Spontaneous
  Country: US (occurrence: None)
  Receive Date: 20220221
  Receipt Date: 20220221
  Transmission Date: 20220423
  Serious: No
  Sender: FDA-Public Use
  Company Number: 2022A063055

PATIENT
  Sex: Male

DRUGS (1)
  1. PULMICORT FLEXHALER [Suspect]
     Active Substance: BUDESONIDE
     Indication: Chronic obstructive pulmonary disease
     Dosage: ONE PUFF TWICE A DAY
     Route: 055

REACTIONS (3)
  - Dementia [Not Recovered/Not Resolved]
  - Device malfunction [Unknown]
  - Device delivery system issue [Unknown]
